FAERS Safety Report 8999198 (Version 1)
Quarter: 2013Q1

REPORT INFORMATION
  Report Type: Spontaneous
  Country: US (occurrence: US)
  Receive Date: 20130103
  Receipt Date: 20130103
  Transmission Date: 20140127
  Serious: No
  Sender: FDA-Public Use
  Company Number: US-JNJFOC-20121213857

PATIENT
  Sex: Female
  Weight: 58.51 kg

DRUGS (4)
  1. DURAGESIC [Suspect]
     Indication: BACK PAIN
     Route: 062
     Dates: end: 2009
  2. DURAGESIC [Suspect]
     Indication: BACK PAIN
     Route: 062
     Dates: start: 1992
  3. FENTANYL [Suspect]
     Indication: BACK PAIN
     Route: 062
  4. DURAGESIC [Suspect]
     Indication: BACK PAIN
     Route: 062
     Dates: start: 2009

REACTIONS (6)
  - Product quality issue [Recovered/Resolved]
  - Drug ineffective [Not Recovered/Not Resolved]
  - Withdrawal syndrome [Not Recovered/Not Resolved]
  - Inappropriate schedule of drug administration [Unknown]
  - Body height decreased [Not Recovered/Not Resolved]
  - Product quality issue [Recovered/Resolved]
